FAERS Safety Report 5289431-8 (Version None)
Quarter: 2007Q2

REPORT INFORMATION
  Report Type: 
  Country: None (occurrence: None)
  Receive Date: 20070406
  Receipt Date: 20070326
  Transmission Date: 20071010
  Serious: Yes (Hospitalization)
  Sender: FDA-Public Use
  Company Number: PHNU2007DE01293

PATIENT
  Age: 61 Year
  Sex: Female
  Weight: 72 kg

DRUGS (10)
  1. FEMARA [Suspect]
     Indication: BREAST CANCER
     Dosage: 2.5 MG, QD
     Route: 048
     Dates: start: 20061215, end: 20070126
  2. RADIOTHERAPY [Concomitant]
     Indication: RADIOTHERAPY TO BREAST
     Route: 065
     Dates: start: 20070108, end: 20070222
  3. EFEROX ^EFEKA^ [Concomitant]
     Dosage: 50 UG, QD
     Route: 048
  4. ACETYLSALICYLIC ACID SRT [Concomitant]
     Dosage: 100 MG, QD
     Route: 048
  5. PENTAERYTHRITOL TETRANITRATE [Concomitant]
     Dosage: 80 MG, BID
     Route: 048
  6. METOPROLOL SUCCINATE [Concomitant]
     Dosage: 1 DF, BID
     Route: 065
  7. PRETERAX [Concomitant]
     Dosage: 0.625 UNK, QD
     Route: 048
  8. MOLSIDOMIN - SLOW RELEASE ^CT-ARZNEIMITTEL^ [Concomitant]
     Dosage: 8 MG, QD
     Route: 048
  9. PRAVASTATIN SODIUM [Concomitant]
     Dosage: 40 MG, QD
     Route: 048
  10. CORANGIN ^NOVARTIS^ [Concomitant]
     Dosage: UNK, PRN
     Route: 048

REACTIONS (5)
  - AUTOIMMUNE HEPATITIS [None]
  - DRUG INTOLERANCE [None]
  - NAUSEA [None]
  - TRANSAMINASES INCREASED [None]
  - VOMITING [None]
